FAERS Safety Report 4309195-1 (Version None)
Quarter: 2004Q1

REPORT INFORMATION
  Report Type: 
  Country: None (occurrence: None)
  Receive Date: 20040301
  Receipt Date: 20040209
  Transmission Date: 20041129
  Serious: No
  Sender: FDA-Public Use
  Company Number: A01200400595

PATIENT
  Age: 56 Year
  Sex: Male

DRUGS (2)
  1. (HYDROXYCHLOROQUINE) - TABLET - UNIT DOSE: UNKNOWN [Suspect]
     Indication: PSORIATIC ARTHROPATHY
     Dosage: 200 MG; ORAL (5 WEEKS - TIME T ONSET: 1 MONTH)
     Route: 048
     Dates: start: 20031027, end: 20031130
  2. MELOXICAM [Concomitant]

REACTIONS (3)
  - ABNORMAL DREAMS [None]
  - AGITATION [None]
  - PARANOIA [None]
